FAERS Safety Report 4849890-9 (Version None)
Quarter: 2005Q4

REPORT INFORMATION
  Report Type: 
  Country: None (occurrence: None)
  Receive Date: 20051114
  Receipt Date: 20050228
  Transmission Date: 20060501
  Serious: No
  Sender: FDA-Public Use
  Company Number: APP200500111

PATIENT
  Sex: Female

DRUGS (1)
  1. FLUOROURACIL INJ [Suspect]
     Indication: NEOPLASM MALIGNANT

REACTIONS (1)
  - EPISTAXIS [None]
